FAERS Safety Report 9937097 (Version 2)
Quarter: 2014Q1

REPORT INFORMATION
  Report Type: Spontaneous
  Country: IT (occurrence: IT)
  Receive Date: 20140301
  Receipt Date: 20140314
  Transmission Date: 20141002
  Serious: Yes (Hospitalization)
  Sender: FDA-Public Use
  Company Number: IT-ASTRAZENECA-2014SE12480

PATIENT
  Age: 31219 Day
  Sex: Male

DRUGS (7)
  1. BICALUTAMIDE [Suspect]
     Indication: PROSTATE CANCER
     Route: 048
     Dates: start: 20130601, end: 20140110
  2. GUAIACOLIC ESTER OF ACETYLSALICYLIC ACID [Concomitant]
  3. RAMIPRIL [Concomitant]
  4. DECAPEPTYL [Concomitant]
     Dates: start: 20130601
  5. LASIX [Concomitant]
  6. DILANTREND [Concomitant]
  7. SIMVASTATIN [Concomitant]

REACTIONS (1)
  - Cardiac failure [Recovering/Resolving]
